FAERS Safety Report 5689392-3 (Version None)
Quarter: 2008Q1

REPORT INFORMATION
  Report Type: 
  Country: None (occurrence: None)
  Receive Date: 20080328
  Receipt Date: 20080314
  Transmission Date: 20080703
  Serious: Yes (Hospitalization)
  Sender: FDA-Public Use
  Company Number: TPA2008A00332

PATIENT
  Age: 50 Year
  Sex: Male
  Weight: 127.0072 kg

DRUGS (16)
  1. ACTOS [Suspect]
     Indication: TYPE 2 DIABETES MELLITUS
     Dosage: 15 MG, 2 IN 1 D, PER ORAL
     Route: 048
     Dates: start: 20040101
  2. LIPITOR [Concomitant]
  3. CARTIA XT [Concomitant]
  4. CLONIDINE [Concomitant]
  5. PLAVIX [Concomitant]
  6. LORATADINE [Concomitant]
  7. DIOVAN [Concomitant]
  8. DOXAZOSIN (DOXAZOSIN) [Concomitant]
  9. DYAZIDE [Concomitant]
  10. FOLIC ACID [Concomitant]
  11. GLIPIZIDE [Concomitant]
  12. NEXIUM [Concomitant]
  13. NIASPAN [Concomitant]
  14. ASPIRIN [Concomitant]
  15. NITROGLYCERIN [Concomitant]
  16. LORTAB [Concomitant]

REACTIONS (6)
  - HERNIA [None]
  - INCISION SITE ABSCESS [None]
  - INFECTION [None]
  - MITOCHONDRIAL CYTOPATHY [None]
  - NEUROPATHY PERIPHERAL [None]
  - PNEUMONIA [None]
